FAERS Safety Report 22246164 (Version 3)
Quarter: 2023Q2

REPORT INFORMATION
  Report Type: Report from Study
  Country: CA (occurrence: CA)
  Receive Date: 20230424
  Receipt Date: 20230518
  Transmission Date: 20230722
  Serious: Yes (Other)
  Sender: FDA-Public Use
  Company Number: CA-SAMSUNG BIOEPIS-SB-2023-10615

PATIENT
  Age: 66 Year
  Sex: Female

DRUGS (2)
  1. HADLIMA [Suspect]
     Active Substance: ADALIMUMAB-BWWD
     Indication: Uveitis
     Dosage: 40 MG/0.8ML;
     Route: 065
     Dates: start: 20221011
  2. HADLIMA [Suspect]
     Active Substance: ADALIMUMAB-BWWD
     Dosage: 40 MG/0.8ML;
     Route: 065
     Dates: start: 20221028

REACTIONS (4)
  - Pneumonia [Unknown]
  - Lung neoplasm malignant [Not Recovered/Not Resolved]
  - Immune system disorder [Unknown]
  - Intraocular pressure test abnormal [Unknown]

NARRATIVE: CASE EVENT DATE: 20230411
